FAERS Safety Report 8571820-7 (Version None)
Quarter: 2012Q3

REPORT INFORMATION
  Report Type: 
  Country: None (occurrence: None)
  Receive Date: 20120806
  Receipt Date: 20120727
  Transmission Date: 20120928
  Serious: Yes (Other)
  Sender: FDA-Public Use
  Company Number: JP-JNJFOC-20120708561

PATIENT
  Sex: Male

DRUGS (2)
  1. UNKNOWN MEDICATION [Concomitant]
     Route: 065
  2. INVEGA [Suspect]
     Indication: PRODUCT USED FOR UNKNOWN INDICATION
     Route: 048

REACTIONS (2)
  - PNEUMONIA [None]
  - PLEURAL EFFUSION [None]
